FAERS Safety Report 7961043-4 (Version None)
Quarter: 2011Q4

REPORT INFORMATION
  Report Type: 
  Country: None (occurrence: None)
  Receive Date: 20111202
  Receipt Date: 20111121
  Transmission Date: 20120403
  Serious: Yes (Life-Threatening, Hospitalization)
  Sender: FDA-Public Use
  Company Number: 2011MA016690

PATIENT
  Age: 9 Year
  Sex: Female

DRUGS (1)
  1. PHENYTOIN [Suspect]
     Indication: STATUS EPILEPTICUS
     Dosage: 18 MG/KG; ;IV
     Route: 042

REACTIONS (5)
  - THROMBOSIS [None]
  - VENOUS OCCLUSION [None]
  - EXTREMITY NECROSIS [None]
  - PURPLE GLOVE SYNDROME [None]
  - DISSEMINATED INTRAVASCULAR COAGULATION [None]
